FAERS Safety Report 4383530-0 (Version None)
Quarter: 2004Q2

REPORT INFORMATION
  Report Type: 
  Country: None (occurrence: None)
  Receive Date: 20040623
  Receipt Date: 20030130
  Transmission Date: 20050107
  Serious: Yes (Other)
  Sender: FDA-Public Use
  Company Number: US-MERCK-0302USA00008

PATIENT
  Age: 50 Year
  Sex: Female
  Weight: 61 kg

DRUGS (7)
  1. ASPIRIN [Concomitant]
     Indication: PAIN
     Route: 048
  2. ASPIRIN [Concomitant]
     Indication: INFLAMMATION
     Route: 048
  3. VIOXX [Suspect]
     Indication: PAIN
     Route: 048
     Dates: start: 20010511, end: 20010612
  4. VIOXX [Suspect]
     Indication: INFLAMMATION
     Route: 048
     Dates: start: 20010511, end: 20010612
  5. VIOXX [Suspect]
     Route: 048
     Dates: start: 20010511, end: 20010612
  6. VIOXX [Suspect]
     Route: 048
     Dates: start: 20010511, end: 20010612
  7. VITAMINS (UNSPECIFIED) [Concomitant]
     Route: 065

REACTIONS (46)
  - ANAL HAEMORRHAGE [None]
  - ANGINA PECTORIS [None]
  - ARRHYTHMIA [None]
  - ARTHRALGIA [None]
  - ARTHROPATHY [None]
  - BREAST CYST [None]
  - BREAST HAEMORRHAGE [None]
  - BURSITIS [None]
  - CHEST DISCOMFORT [None]
  - CLOSED HEAD INJURY [None]
  - CONCUSSION [None]
  - CONTUSION [None]
  - DEPRESSION [None]
  - DIZZINESS [None]
  - DYSPNOEA EXERTIONAL [None]
  - DYSPNOEA PAROXYSMAL NOCTURNAL [None]
  - EMOTIONAL DISORDER [None]
  - EMOTIONAL DISTRESS [None]
  - EXTRASYSTOLES [None]
  - FALL [None]
  - FATIGUE [None]
  - GINGIVAL DISORDER [None]
  - HAEMATOCHEZIA [None]
  - HAEMORRHAGE [None]
  - HEADACHE [None]
  - HEART RATE IRREGULAR [None]
  - HYPERCHOLESTEROLAEMIA [None]
  - HYSTERECTOMY [None]
  - INJURY [None]
  - LUMBAR SPINAL STENOSIS [None]
  - MITRAL VALVE PROLAPSE [None]
  - NAUSEA [None]
  - NERVE COMPRESSION [None]
  - NERVE INJURY [None]
  - PALPITATIONS [None]
  - POST-TRAUMATIC STRESS DISORDER [None]
  - REFLEX SYMPATHETIC DYSTROPHY [None]
  - SALPINGO-OOPHORECTOMY [None]
  - SLEEP DISORDER [None]
  - STRESS SYMPTOMS [None]
  - SYNCOPE [None]
  - UTERINE HAEMORRHAGE [None]
  - UTERINE LEIOMYOMA [None]
  - VAGINAL HAEMORRHAGE [None]
  - VASODILATATION [None]
  - VOMITING [None]
